FAERS Safety Report 7804948-7 (Version None)
Quarter: 2011Q4

REPORT INFORMATION
  Report Type: 
  Country: None (occurrence: None)
  Receive Date: 20111010
  Receipt Date: 20111006
  Transmission Date: 20120403
  Serious: Yes (Death, Other)
  Sender: FDA-Public Use
  Company Number: PHHY2011JP82096

PATIENT
  Sex: Male

DRUGS (6)
  1. S-1 [Suspect]
     Dosage: 120 MG PER DAY
     Dates: start: 20031120
  2. CISPLATIN [Concomitant]
     Dosage: 60 MG/M2, UNK
     Dates: start: 20030101
  3. IRINOTECAN HCL [Suspect]
     Dosage: 50 MG/M2, UNK
     Dates: start: 20050602
  4. PACLITAXEL [Concomitant]
     Indication: METASTATIC NEOPLASM
     Dosage: 60 MG/M2, UNK
     Dates: start: 20040329
  5. PACLITAXEL [Concomitant]
     Dosage: 20 MG/M2, UNK
     Route: 033
  6. S-1 [Suspect]
     Dosage: 100 MG PER DAY

REACTIONS (8)
  - ANAEMIA [None]
  - JAUNDICE CHOLESTATIC [None]
  - NEOPLASM MALIGNANT [None]
  - LIVER DISORDER [None]
  - ASCITES [None]
  - LYMPHADENOPATHY [None]
  - PLEURAL EFFUSION [None]
  - DEATH [None]
